FAERS Safety Report 5734309-6 (Version None)
Quarter: 2008Q2

REPORT INFORMATION
  Report Type: 
  Country: None (occurrence: None)
  Receive Date: 20080512
  Receipt Date: 20080508
  Transmission Date: 20081010
  Serious: Yes (Life-Threatening, Hospitalization)
  Sender: FDA-Public Use
  Company Number: JP-BRISTOL-MYERS SQUIBB COMPANY-14114045

PATIENT
  Age: 67 Year
  Sex: Female

DRUGS (10)
  1. TAXOL [Suspect]
     Indication: UTERINE CANCER
     Dosage: CYC 1:23-MAY-07,CYC 2:20-JUN-07,CYC 3:11-JUL-07,CYC 4:15-AUG-07,CYC 5:05-SEP-07.
     Route: 041
     Dates: start: 20071024, end: 20071024
  2. PARAPLATIN [Concomitant]
     Indication: UTERINE CANCER
     Dosage: CYC 1:23-MAY-07,CYC 2:20-JUN-07,CYC 3:11-JUL-07,CYC 4:15-AUG-07,CYC 5:05-SEP-07.
     Route: 041
     Dates: start: 20071024, end: 20071024
  3. GRAN [Concomitant]
     Route: 058
     Dates: start: 20071119, end: 20071122
  4. KYTRIL [Concomitant]
     Route: 041
     Dates: start: 20070523, end: 20071024
  5. NASEA [Concomitant]
     Route: 048
     Dates: start: 20070523, end: 20071024
  6. DEXAMETHASONE SODIUM PHOSPHATE [Concomitant]
     Indication: PREMEDICATION
     Route: 042
     Dates: start: 20070523, end: 20071024
  7. DIPHENHYDRAMINE HCL [Concomitant]
     Route: 048
     Dates: start: 20070523, end: 20071024
  8. RANITIDINE HCL [Concomitant]
     Indication: PREMEDICATION
     Route: 042
     Dates: start: 20070523, end: 20071024
  9. SHAKUYAKU-KANZO-TO [Concomitant]
     Route: 048
     Dates: start: 20070620, end: 20071024
  10. GOSHAJINKIGAN [Concomitant]
     Route: 048
     Dates: start: 20070523, end: 20070530

REACTIONS (2)
  - DUODENAL PERFORATION [None]
  - WHITE BLOOD CELL COUNT DECREASED [None]
